FAERS Safety Report 18744953 (Version 3)
Quarter: 2021Q1

REPORT INFORMATION
  Report Type: Spontaneous
  Country: DZ (occurrence: DZ)
  Receive Date: 20210115
  Receipt Date: 20210222
  Transmission Date: 20210419
  Serious: Yes (Life-Threatening, Hospitalization, Disabling)
  Sender: FDA-Public Use
  Company Number: DZ-BIOVITRUM-2021DZ0238

PATIENT
  Age: 13 Year
  Sex: Male
  Weight: 57 kg

DRUGS (1)
  1. KINERET [Suspect]
     Active Substance: ANAKINRA
     Indication: AUTOINFLAMMATORY DISEASE
     Route: 058
     Dates: start: 20201231, end: 20210106

REACTIONS (6)
  - Urticaria [Recovering/Resolving]
  - Pyrexia [Unknown]
  - Hypersensitivity [Recovered/Resolved]
  - Off label use [Recovered/Resolved]
  - Myalgia [Unknown]
  - Face oedema [Unknown]

NARRATIVE: CASE EVENT DATE: 20201231
